FAERS Safety Report 10407694 (Version 1)
Quarter: 2014Q3

REPORT INFORMATION
  Report Type: Spontaneous
  Country: US (occurrence: US)
  Receive Date: 20140825
  Receipt Date: 20140825
  Transmission Date: 20150326
  Serious: No
  Sender: FDA-Public Use
  Company Number: US-ENDO PHARMACEUTICALS INC.-PRED20130051

PATIENT
  Age: 58 Year
  Sex: Female
  Weight: 99.43 kg

DRUGS (2)
  1. PREDNISONE TABLETS [Suspect]
     Active Substance: PREDNISONE
     Indication: ACUTE SINUSITIS
     Route: 065
     Dates: start: 20130709
  2. PREDNISONE TABLETS [Suspect]
     Active Substance: PREDNISONE
     Indication: BRONCHITIS

REACTIONS (1)
  - Leukocytosis [Recovered/Resolved]

NARRATIVE: CASE EVENT DATE: 201307
